FAERS Safety Report 17155964 (Version 1)
Quarter: 2019Q4

REPORT INFORMATION
  Report Type: Report from Study
  Country: IT (occurrence: IT)
  Receive Date: 20191216
  Receipt Date: 20191216
  Transmission Date: 20200122
  Serious: Yes (Hospitalization)
  Sender: FDA-Public Use
  Company Number: IT-TEVA-2019-IT-1151062

PATIENT
  Age: 84 Year
  Sex: Female

DRUGS (9)
  1. ENAPREN 20 MG COMPRESSE [Concomitant]
     Active Substance: ENALAPRIL MALEATE
  2. ADENURIC 80 MG FILM-COATED TABLETS [Concomitant]
  3. OMEPRAZOLE SODIUM [Suspect]
     Active Substance: OMEPRAZOLE SODIUM
     Indication: GASTROOESOPHAGEAL REFLUX DISEASE
     Dosage: 1 DOSAGE FORM PER DAY
     Route: 048
  4. BISOPROLOL FUMARATE. [Concomitant]
     Active Substance: BISOPROLOL FUMARATE
     Dosage: 5MG
     Route: 048
  5. LASIX [Concomitant]
     Active Substance: FUROSEMIDE
  6. LANOXIN [Concomitant]
     Active Substance: DIGOXIN
  7. CRESTOR [Interacting]
     Active Substance: ROSUVASTATIN CALCIUM
     Dosage: 1 DOSAGE FORM PER DAY
     Route: 048
  8. COUMADIN [Interacting]
     Active Substance: WARFARIN SODIUM
     Indication: ATRIAL FIBRILLATION
     Dosage: 1 DOSAGE FORM AS REQUIRED
     Route: 048
  9. BARNIDIPINE HYDROCHLORIDE [Concomitant]
     Active Substance: BARNIDIPINE HYDROCHLORIDE
     Dosage: 10MG
     Route: 048

REACTIONS (4)
  - Haematuria [Recovering/Resolving]
  - Anaemia [Recovering/Resolving]
  - International normalised ratio increased [Recovering/Resolving]
  - Drug interaction [Recovering/Resolving]

NARRATIVE: CASE EVENT DATE: 20191110
